FAERS Safety Report 9203447 (Version 1)
Quarter: 2013Q1

REPORT INFORMATION
  Report Type: Spontaneous
  Country: US (occurrence: None)
  Receive Date: 20120709
  Receipt Date: 20120709
  Transmission Date: 20140127
  Serious: No
  Sender: FDA-Public Use
  Company Number: 2012HGS-003691

PATIENT
  Age: 64 Year
  Sex: Female
  Weight: 88 kg

DRUGS (10)
  1. BENLYSTA [Suspect]
     Indication: SYSTEMIC LUPUS ERYTHEMATOSUS
     Dosage: 1 IN 28 D
     Route: 041
  2. CLONAZEPAM (CLONAZEPAM) (CLONAZEPAM) [Concomitant]
     Dosage: 3 IN 1D
  3. LIPITOR (ATORVASTATIN CALCIUM) (ATORVASTATIN CALCIUM) [Concomitant]
     Dosage: 1 IN 1 D
  4. LEXAPRO (ESCITALOPRAM OXALATE) (ESCITALOPRAM OXALATE) [Concomitant]
     Dosage: 1 IN 1 D
  5. NORVASC (AMLODIPINE BESILATE) (AMLODIPINE BESILATE) [Concomitant]
     Dosage: 1 IN 1D
  6. VITAMIN D3 (COLECALCIFEROL) (COLECALCIFEROL) [Concomitant]
     Dosage: 1 IN 1D
  7. ASPRIN (ACETYLSALICYLIC ACID) (ACETYLOSALICYLIC ACID) [Concomitant]
     Dosage: I IN 1D
  8. NORCO (VICODIN) (PARACETAMOL, HYDROCODONE BITATRATE) [Concomitant]
     Dosage: 1, 4 IN 1 D
  9. IMURAN (AZATHIOPRINE) (AZATHIOPRINE) [Concomitant]
     Dosage: 1 IN 1D
  10. ISOSORBIDE (ISOSORBIDE) (ISOSORBIDE) [Concomitant]
     Dosage: 1 IN 1 D

REACTIONS (1)
  - Oedema [None]
